FAERS Safety Report 6926166-7 (Version None)
Quarter: 2010Q3

REPORT INFORMATION
  Report Type: 
  Country: None (occurrence: None)
  Receive Date: 20100816
  Receipt Date: 20100804
  Transmission Date: 20110219
  Serious: Yes (Hospitalization, Other)
  Sender: FDA-Public Use
  Company Number: US-PFIZER INC-2010098604

PATIENT
  Sex: Male
  Weight: 90.718 kg

DRUGS (4)
  1. LYRICA [Suspect]
     Indication: PAIN
     Dosage: FREQUENCY: 2X/DAY,
     Dates: start: 20100101
  2. METOPROLOL [Concomitant]
     Indication: HYPERTENSION
     Dosage: FREQUENCY: 2X/DAY,
  3. SIMVASTATIN [Concomitant]
     Indication: BLOOD CHOLESTEROL INCREASED
     Dosage: 20 MG, UNK
  4. LORTAB [Concomitant]
     Indication: PAIN
     Dosage: 5/325MG ONCE OR TWICE A DAY AS NEEDED,

REACTIONS (4)
  - CEREBROVASCULAR ACCIDENT [None]
  - MUSCULAR WEAKNESS [None]
  - OEDEMA PERIPHERAL [None]
  - PAIN [None]
